FAERS Safety Report 24212135 (Version 1)
Quarter: 2024Q3

REPORT INFORMATION
  Report Type: Spontaneous
  Country: US (occurrence: US)
  Receive Date: 20240815
  Receipt Date: 20240815
  Transmission Date: 20241017
  Serious: No
  Sender: ABBVIE
  Company Number: US-ABBVIE-5878403

PATIENT

DRUGS (1)
  1. LATISSE [Suspect]
     Active Substance: BIMATOPROST
     Indication: Product used for unknown indication
     Route: 061

REACTIONS (5)
  - Dry eye [Unknown]
  - Ocular hyperaemia [Unknown]
  - Vision blurred [Unknown]
  - Erythema of eyelid [Unknown]
  - Drug ineffective [Unknown]
